FAERS Safety Report 15659116 (Version 2)
Quarter: 2019Q1

REPORT INFORMATION
  Report Type: Spontaneous
  Country: NO (occurrence: NO)
  Receive Date: 20181127
  Receipt Date: 20190102
  Transmission Date: 20190417
  Serious: Yes (Death, Other)
  Sender: FDA-Public Use
  Company Number: NO-SA-2018SA010780

PATIENT
  Age: 66 Year
  Sex: Male

DRUGS (1)
  1. STILNOCT [Suspect]
     Active Substance: ZOLPIDEM TARTRATE
     Dosage: 1000 DF, TOTAL
     Route: 048
     Dates: start: 2014, end: 2014

REACTIONS (3)
  - Asphyxia [Fatal]
  - Toxicity to various agents [Fatal]
  - Overdose [Fatal]

NARRATIVE: CASE EVENT DATE: 20140406
